FAERS Safety Report 8997777 (Version 1)
Quarter: 2013Q1

REPORT INFORMATION
  Report Type: Report from Study
  Country: GB (occurrence: GB)
  Receive Date: 20130104
  Receipt Date: 20130104
  Transmission Date: 20140127
  Serious: Yes (Other)
  Sender: FDA-Public Use
  Company Number: GB-ROCHE-1175084

PATIENT
  Age: 70 Year
  Sex: Male

DRUGS (3)
  1. CAPECITABINE [Suspect]
     Indication: COLORECTAL CANCER
     Route: 065
     Dates: start: 20061114
  2. OXALIPLATIN [Suspect]
     Indication: COLORECTAL CANCER
     Route: 065
     Dates: start: 20061114
  3. CETUXIMAB [Suspect]
     Indication: COLORECTAL CANCER
     Route: 065
     Dates: start: 20061114

REACTIONS (2)
  - Convulsion [Recovered/Resolved]
  - Hypomagnesaemia [Recovered/Resolved]
